FAERS Safety Report 24314306 (Version 1)
Quarter: 2024Q3

REPORT INFORMATION
  Report Type: Report from Study
  Country: US (occurrence: US)
  Receive Date: 20240912
  Receipt Date: 20240912
  Transmission Date: 20241016
  Serious: Yes (Other)
  Sender: ABBVIE
  Company Number: US-ABBVIE-5641618

PATIENT
  Age: 82 Year
  Sex: Male

DRUGS (2)
  1. HUMIRA [Suspect]
     Active Substance: ADALIMUMAB
     Indication: Product used for unknown indication
     Route: 058
     Dates: start: 20220215
  2. HUMIRA [Suspect]
     Active Substance: ADALIMUMAB
     Dosage: FORM STRENGTH: 40 MILLIGRAM
     Route: 058
     Dates: start: 20230215

REACTIONS (8)
  - Deafness [Unknown]
  - Parkinson^s disease [Not Recovered/Not Resolved]
  - Parkinson^s disease [Recovered/Resolved]
  - Dysphagia [Unknown]
  - Cough [Unknown]
  - Oesophagitis [Unknown]
  - Memory impairment [Unknown]
  - Gait disturbance [Unknown]

NARRATIVE: CASE EVENT DATE: 20240501
